FAERS Safety Report 7084416-3 (Version None)
Quarter: 2010Q4

REPORT INFORMATION
  Report Type: 
  Country: None (occurrence: None)
  Receive Date: 20101104
  Receipt Date: 20101030
  Transmission Date: 20110411
  Serious: Yes (Other)
  Sender: FDA-Public Use
  Company Number: US-PFIZER INC-2010138358

PATIENT
  Sex: Female
  Weight: 52.2 kg

DRUGS (4)
  1. LIPITOR [Suspect]
     Indication: BLOOD CHOLESTEROL INCREASED
     Dosage: 40 MG DAILY
     Route: 048
  2. PREDNISONE [Concomitant]
     Indication: FIBROMYALGIA
     Dosage: 7 MG, UNK
  3. GABAPENTIN [Concomitant]
     Indication: MUSCLE RELAXANT THERAPY
     Dosage: 300 MG, UNK
     Dates: start: 20100101
  4. VITAMIN D [Concomitant]
     Indication: VITAMIN SUPPLEMENTATION
     Dosage: UNK

REACTIONS (1)
  - BLOOD CHOLESTEROL INCREASED [None]
